FAERS Safety Report 9929007 (Version 1)
Quarter: 2014Q1

REPORT INFORMATION
  Report Type: Spontaneous
  Country: US (occurrence: None)
  Receive Date: 20140224
  Receipt Date: 20140224
  Transmission Date: 20141002
  Serious: Yes (Life-Threatening, Hospitalization, Other)
  Sender: FDA-Public Use
  Company Number: FK201400524

PATIENT
  Age: 65 Year
  Sex: Male

DRUGS (3)
  1. AMIODARONE HCL [Suspect]
     Indication: ATRIAL FIBRILLATION
  2. DABIGATRAN [Suspect]
     Indication: ANTICOAGULANT THERAPY
     Dosage: 150 MG, 2 IN 1 D, UNKNOWN
  3. WARFARIN [Concomitant]

REACTIONS (8)
  - Gastric haemorrhage [None]
  - Gastritis erosive [None]
  - Drug interaction [None]
  - Intracardiac thrombus [None]
  - International normalised ratio increased [None]
  - Prothrombin time prolonged [None]
  - Activated partial thromboplastin time prolonged [None]
  - Toxicity to various agents [None]
